FAERS Safety Report 5385727-X (Version None)
Quarter: 2007Q3

REPORT INFORMATION
  Report Type: 
  Country: None (occurrence: None)
  Receive Date: 20070712
  Receipt Date: 20070702
  Transmission Date: 20080115
  Serious: Yes (Other)
  Sender: FDA-Public Use
  Company Number: GB-PFIZER INC-2007040229

PATIENT
  Age: 55 Year
  Sex: Male

DRUGS (3)
  1. LIPITOR [Suspect]
     Route: 048
  2. FINASTERIDE [Concomitant]
     Indication: ALOPECIA
  3. ALL OTHER THERAPEUTIC PRODUCTS [Concomitant]
     Indication: ALOPECIA
     Route: 061

REACTIONS (1)
  - SEXUAL DYSFUNCTION [None]
